FAERS Safety Report 19267903 (Version 2)
Quarter: 2021Q2

REPORT INFORMATION
  Report Type: Spontaneous
  Country: US (occurrence: US)
  Receive Date: 20210518
  Receipt Date: 20210628
  Transmission Date: 20210717
  Serious: No
  Sender: FDA-Public Use
  Company Number: US-GILEAD-2021-0528703

PATIENT
  Sex: Male

DRUGS (10)
  1. RIBAVIRIN. [Concomitant]
     Active Substance: RIBAVIRIN
  2. MAGNESIUM [Concomitant]
     Active Substance: MAGNESIUM
  3. CARVEDILOL. [Concomitant]
     Active Substance: CARVEDILOL
  4. IBUPROFEN. [Concomitant]
     Active Substance: IBUPROFEN
  5. FERROUS SULFATE. [Concomitant]
     Active Substance: FERROUS SULFATE
  6. POTASSIUM [Concomitant]
     Active Substance: POTASSIUM
  7. MULTIPLE VITAMIN [Concomitant]
     Active Substance: VITAMINS
  8. BUMEX [Concomitant]
     Active Substance: BUMETANIDE
  9. SOFOSBUVIR;VELPATASVIR [Suspect]
     Active Substance: SOFOSBUVIR\VELPATASVIR
     Indication: CHRONIC HEPATITIS C
     Dosage: 400MG?100MG TAKE 1 TABLET BY MOUTH ONCE DAILY
     Route: 048
     Dates: start: 202103
  10. GABAPENTIN. [Concomitant]
     Active Substance: GABAPENTIN

REACTIONS (4)
  - Ageusia [Not Recovered/Not Resolved]
  - Vomiting [Not Recovered/Not Resolved]
  - Weight decreased [Not Recovered/Not Resolved]
  - Fatigue [Not Recovered/Not Resolved]
